FAERS Safety Report 9948022 (Version 1)
Quarter: 2014Q1

REPORT INFORMATION
  Report Type: Report from Study
  Country: US (occurrence: US)
  Receive Date: 20140303
  Receipt Date: 20140303
  Transmission Date: 20141002
  Serious: No
  Sender: FDA-Public Use
  Company Number: US-ABBVIE-13P-163-1062708-00

PATIENT
  Age: 57 Year
  Sex: Female

DRUGS (8)
  1. HUMIRA [Suspect]
     Indication: CROHN^S DISEASE
     Dates: start: 20130208, end: 20130208
  2. HUMIRA [Suspect]
     Dates: start: 20130222, end: 20130222
  3. HUMIRA [Suspect]
     Dates: start: 20130308
  4. XANAX [Concomitant]
     Indication: PRODUCT USED FOR UNKNOWN INDICATION
     Dosage: AS NEEDED
  5. VASOTEC [Concomitant]
     Indication: PRODUCT USED FOR UNKNOWN INDICATION
  6. FOLIC ACID [Concomitant]
     Indication: PRODUCT USED FOR UNKNOWN INDICATION
  7. B12 INJECTIONS [Concomitant]
     Indication: PRODUCT USED FOR UNKNOWN INDICATION
     Dosage: 1000 MG MONTHLY
     Route: 050
  8. VITAMIN D [Concomitant]
     Indication: PRODUCT USED FOR UNKNOWN INDICATION
     Dosage: 50,000 MG EVERY WEDNESDAY

REACTIONS (4)
  - Malaise [Not Recovered/Not Resolved]
  - Injection site pain [Recovering/Resolving]
  - Pyrexia [Not Recovered/Not Resolved]
  - Injection site reaction [Not Recovered/Not Resolved]
